FAERS Safety Report 22074148 (Version 2)
Quarter: 2023Q1

REPORT INFORMATION
  Report Type: Spontaneous
  Country: US (occurrence: US)
  Receive Date: 20230308
  Receipt Date: 20230316
  Transmission Date: 20230418
  Serious: No
  Sender: FDA-Public Use
  Company Number: US-AMGEN-USASP2023037562

PATIENT
  Age: 52 Year
  Sex: Male

DRUGS (6)
  1. VECTIBIX [Suspect]
     Active Substance: PANITUMUMAB
     Indication: Colorectal cancer stage IV
     Dosage: 6 MILLIGRAM/KILOGRAM, Q2WK
     Route: 065
     Dates: start: 20230214
  2. VECTIBIX [Suspect]
     Active Substance: PANITUMUMAB
     Dosage: 460 MILLIGRAM
     Route: 042
  3. VECTIBIX [Suspect]
     Active Substance: PANITUMUMAB
     Dosage: 460 MILLIGRAM
     Route: 042
  4. LEUCOVORIN [Concomitant]
     Active Substance: LEUCOVORIN
     Indication: Colorectal cancer metastatic
     Dosage: UNK
  5. FLUOROURACIL [Concomitant]
     Active Substance: FLUOROURACIL
     Indication: Colorectal cancer metastatic
     Dosage: UNK
  6. OXALIPLATIN [Concomitant]
     Active Substance: OXALIPLATIN
     Indication: Colorectal cancer metastatic
     Dosage: UNK

REACTIONS (1)
  - Blood magnesium decreased [Not Recovered/Not Resolved]

NARRATIVE: CASE EVENT DATE: 20230228
